FAERS Safety Report 23235582 (Version 1)
Quarter: 2023Q4

REPORT INFORMATION
  Report Type: Spontaneous
  Country: US (occurrence: None)
  Receive Date: 20231128
  Receipt Date: 20231128
  Transmission Date: 20240110
  Serious: Yes (Hospitalization)
  Sender: FDA-Public Use
  Company Number: None

PATIENT
  Sex: Male

DRUGS (3)
  1. OPSUMIT [Suspect]
     Active Substance: MACITENTAN
     Indication: Pulmonary arterial hypertension
     Dosage: FREQUENCY : DAILY;?
     Route: 048
  2. LETAIRIS [Suspect]
     Active Substance: AMBRISENTAN
  3. CABENUVA SUS [Concomitant]

REACTIONS (5)
  - Gastrooesophageal reflux disease [None]
  - Headache [None]
  - Nasal congestion [None]
  - Dizziness [None]
  - Dehydration [None]
